FAERS Safety Report 16278471 (Version 1)
Quarter: 2019Q2

REPORT INFORMATION
  Report Type: Spontaneous
  Country: FR (occurrence: FR)
  Receive Date: 20190506
  Receipt Date: 20190506
  Transmission Date: 20190711
  Serious: Yes (Other)
  Sender: FDA-Public Use
  Company Number: FR-GLAXOSMITHKLINE-FR2019GSK078495

PATIENT
  Age: 23 Year
  Sex: Female

DRUGS (8)
  1. LAMIVUDINE. [Suspect]
     Active Substance: LAMIVUDINE
     Indication: HIV INFECTION
     Dosage: UNK
  2. FLUCONAZOLE. [Concomitant]
     Active Substance: FLUCONAZOLE
     Dosage: 400 MG, UNK
     Route: 042
  3. FLUCONAZOLE. [Concomitant]
     Active Substance: FLUCONAZOLE
     Indication: SEIZURE
     Dosage: 800 MG, UNK
     Route: 042
  4. DARUNAVIR [Suspect]
     Active Substance: DARUNAVIR
     Indication: HIV INFECTION
     Dosage: UNK
  5. AMPHOTERICIN B. [Concomitant]
     Active Substance: AMPHOTERICIN B
     Indication: MENINGITIS CRYPTOCOCCAL
  6. ABACAVIR. [Suspect]
     Active Substance: ABACAVIR
     Indication: HIV INFECTION
     Dosage: UNK
  7. FLUCYTOSINE. [Concomitant]
     Active Substance: FLUCYTOSINE
     Indication: MENINGITIS CRYPTOCOCCAL
     Dosage: UNK
  8. 5-FLUOROCYTOSINE [Concomitant]
     Active Substance: FLUCYTOSINE
     Indication: ANTIFUNGAL TREATMENT
     Dosage: UNK

REACTIONS (5)
  - Central nervous system lesion [Unknown]
  - Immune reconstitution inflammatory syndrome [Unknown]
  - Brain oedema [Unknown]
  - Inflammation [Unknown]
  - Status epilepticus [Unknown]
